FAERS Safety Report 7946456-9 (Version None)
Quarter: 2011Q4

REPORT INFORMATION
  Report Type: 
  Country: None (occurrence: None)
  Receive Date: 20111129
  Receipt Date: 20110927
  Transmission Date: 20120403
  Serious: No
  Sender: FDA-Public Use
  Company Number: US-B.I. PHARMACEUTICALS,INC./RIDGEFIELD-2011-BP-07470BP

PATIENT
  Age: 83 Year
  Sex: Male

DRUGS (7)
  1. DIOVAN [Concomitant]
     Indication: HYPERTENSION
     Route: 048
  2. DILANTIN [Concomitant]
     Indication: CONVULSION
     Route: 048
  3. AGGRENOX [Suspect]
     Indication: CEREBROVASCULAR ACCIDENT PROPHYLAXIS
  4. PRILOSEC [Concomitant]
     Indication: GASTROOESOPHAGEAL REFLUX DISEASE
     Route: 048
  5. LORAZEPAM [Concomitant]
     Route: 048
  6. AGGRENOX [Suspect]
     Indication: CEREBROVASCULAR ACCIDENT
     Route: 048
     Dates: start: 20100101
  7. BACTRIM [Concomitant]
     Indication: INFECTION
     Route: 048
     Dates: start: 20110901

REACTIONS (4)
  - DIZZINESS [None]
  - MUSCULAR WEAKNESS [None]
  - CONTUSION [None]
  - FATIGUE [None]
